FAERS Safety Report 18985729 (Version 6)
Quarter: 2023Q1

REPORT INFORMATION
  Report Type: Report from Study
  Country: US (occurrence: US)
  Receive Date: 20210309
  Receipt Date: 20230317
  Transmission Date: 20230418
  Serious: Yes (Other)
  Sender: FDA-Public Use
  Company Number: NVSC2021US051802

PATIENT
  Sex: Male

DRUGS (1)
  1. COSENTYX [Suspect]
     Active Substance: SECUKINUMAB
     Indication: Product used for unknown indication
     Dosage: UNK
     Route: 065

REACTIONS (5)
  - Psoriatic arthropathy [Unknown]
  - Gait disturbance [Unknown]
  - Pain in extremity [Unknown]
  - Pain [Unknown]
  - Product dose omission issue [Unknown]
